FAERS Safety Report 16141187 (Version 12)
Quarter: 2020Q2

REPORT INFORMATION
  Report Type: Spontaneous
  Country: US (occurrence: US)
  Receive Date: 20190401
  Receipt Date: 20200424
  Transmission Date: 20200713
  Serious: Yes (Hospitalization, Other)
  Sender: FDA-Public Use
  Company Number: US-PFIZER INC-2019134125

PATIENT
  Age: 55 Year
  Sex: Female
  Weight: 77 kg

DRUGS (6)
  1. IBRANCE [Suspect]
     Active Substance: PALBOCICLIB
     Dosage: 125 MG, 1X/DAY
     Dates: start: 201903, end: 2019
  2. LETROZOLE. [Concomitant]
     Active Substance: LETROZOLE
     Dosage: UNK
  3. IBRANCE [Suspect]
     Active Substance: PALBOCICLIB
     Indication: BREAST CANCER METASTATIC
     Dosage: 125 MG, 1X/DAY
  4. IBRANCE [Suspect]
     Active Substance: PALBOCICLIB
     Dosage: 125 MG, UNK
     Dates: start: 2019, end: 2019
  5. IBRANCE [Suspect]
     Active Substance: PALBOCICLIB
     Dosage: 100 MG, CYCLIC (21 DAYS THEN 7 DAYS OFF)
     Route: 048
     Dates: start: 201906
  6. XANAX [Concomitant]
     Active Substance: ALPRAZOLAM
     Dosage: UNK

REACTIONS (24)
  - Product dose omission [Unknown]
  - Tinnitus [Unknown]
  - Hyperhidrosis [Unknown]
  - Emotional disorder [Unknown]
  - White blood cell count decreased [Recovered/Resolved]
  - Malaise [Unknown]
  - Pyrexia [Unknown]
  - Fatigue [Unknown]
  - Headache [Unknown]
  - Paranoia [Unknown]
  - Blood pressure increased [Unknown]
  - Fear [Unknown]
  - Somnolence [Unknown]
  - Insomnia [Unknown]
  - Anxiety [Unknown]
  - Abdominal distension [Unknown]
  - Slow speech [Unknown]
  - Weight increased [Recovered/Resolved]
  - Dizziness [Unknown]
  - Hot flush [Unknown]
  - Decreased appetite [Unknown]
  - Sepsis [Recovered/Resolved]
  - Sluggishness [Unknown]
  - Hair growth abnormal [Unknown]

NARRATIVE: CASE EVENT DATE: 201902
